FAERS Safety Report 13245726 (Version 1)
Quarter: 2017Q1

REPORT INFORMATION
  Report Type: Spontaneous
  Country: US (occurrence: US)
  Receive Date: 20170217
  Receipt Date: 20170217
  Transmission Date: 20170428
  Serious: Yes (Other)
  Sender: FDA-Public Use
  Company Number: US-ELI_LILLY_AND_COMPANY-US_0509122457

PATIENT
  Age: 42 Year
  Sex: Female
  Weight: 105.45 kg

DRUGS (8)
  1. PREDNISONE. [Concomitant]
     Active Substance: PREDNISONE
     Dates: start: 2004, end: 2006
  2. HUMALOG [Concomitant]
     Active Substance: INSULIN LISPRO
  3. LOPRESSOR [Concomitant]
     Active Substance: METOPROLOL TARTRATE
     Dosage: UNK, UNKNOWN
     Dates: start: 2002
  4. FLUOXETINE [Concomitant]
     Active Substance: FLUOXETINE HYDROCHLORIDE
     Dates: start: 2003
  5. ZYPREXA [Suspect]
     Active Substance: OLANZAPINE
     Indication: SLEEP DISORDER
     Dosage: 5 MG, UNKNOWN
     Dates: start: 20020621, end: 20040202
  6. CORTICOSTEROID NOS [Concomitant]
     Active Substance: CORTICOSTEROID NOS
     Dosage: UNK, UNKNOWN
     Dates: start: 2002, end: 2006
  7. HYDROCHLOROTHIAZIDE. [Concomitant]
     Active Substance: HYDROCHLOROTHIAZIDE
     Dosage: UNK, UNKNOWN
     Dates: start: 2003
  8. SERTRALINE [Concomitant]
     Active Substance: SERTRALINE HYDROCHLORIDE
     Dates: start: 2001, end: 2003

REACTIONS (3)
  - Metabolic disorder [Unknown]
  - Type 2 diabetes mellitus [Not Recovered/Not Resolved]
  - Ketonuria [Unknown]

NARRATIVE: CASE EVENT DATE: 200508
